FAERS Safety Report 9998824 (Version 2)
Quarter: 2014Q1

REPORT INFORMATION
  Report Type: Report from Study
  Country: US (occurrence: US)
  Receive Date: 20140312
  Receipt Date: 20140312
  Transmission Date: 20141002
  Serious: Yes (Hospitalization)
  Sender: FDA-Public Use
  Company Number: US-MERCK-1304USA006580

PATIENT
  Age: 53 Year
  Sex: Female
  Weight: 111.7 kg

DRUGS (13)
  1. BLINDED MK-5172 [Suspect]
     Indication: CHRONIC HEPATITIS C
     Dosage: UNK
     Route: 048
     Dates: start: 20130226, end: 20130407
  2. PEGINTRON [Suspect]
     Indication: CHRONIC HEPATITIS C
     Dosage: 0.57 ML, QW
     Route: 058
     Dates: start: 20130226, end: 20130515
  3. REBETOL [Suspect]
     Indication: CHRONIC HEPATITIS C
     Dosage: 3 CAPSULES, QAM
     Route: 048
     Dates: start: 20130226, end: 20130407
  4. REBETOL [Suspect]
     Dosage: 4 CAPSULES, QPM
     Route: 048
     Dates: start: 20130226, end: 20130405
  5. LORATADINE [Concomitant]
     Indication: RHINITIS PERENNIAL
     Dosage: TOTAL DAILY DOSE 10 MG, EVERY DAY
     Route: 048
     Dates: start: 20130101
  6. NASACORT AQ [Concomitant]
     Indication: RHINITIS PERENNIAL
     Dosage: TOTAL DAILY DOSE 2 SPRAY, EVERY DAY
     Route: 045
     Dates: start: 20130101
  7. ALPRAZOLAM [Concomitant]
     Indication: ANXIETY
     Dosage: TOTAL DAILY DOSE 2 MG, PRN
     Route: 048
     Dates: start: 20130101
  8. AMBIEN [Concomitant]
     Indication: INSOMNIA
     Dosage: TOTAL DAILY DOSE 10 MG, PRN
     Route: 048
     Dates: start: 20130101
  9. SOMA [Concomitant]
     Indication: BACK PAIN
     Dosage: TOTAL DAILY DOSE 350 MG, PRN
     Route: 048
     Dates: start: 20130101
  10. SOMA [Concomitant]
     Indication: NECK PAIN
  11. OMEPRAZOLE [Concomitant]
     Indication: GASTROOESOPHAGEAL REFLUX DISEASE
     Dosage: TOTAL DAILY DOSE 40 MG, PRN
     Route: 048
     Dates: start: 20130101
  12. LORTAB [Concomitant]
     Indication: NECK PAIN
     Dosage: 1 TABLET PRN
     Route: 048
     Dates: start: 20130101, end: 20130501
  13. LORTAB [Concomitant]
     Indication: BACK PAIN

REACTIONS (1)
  - Abdominal pain [Recovered/Resolved]
